FAERS Safety Report 7391989-X (Version None)
Quarter: 2011Q2

REPORT INFORMATION
  Report Type: 
  Country: None (occurrence: None)
  Receive Date: 20110404
  Receipt Date: 20110329
  Transmission Date: 20111010
  Serious: Yes (Death, Other)
  Sender: FDA-Public Use
  Company Number: PHHY2011EC25595

PATIENT
  Sex: Female

DRUGS (1)
  1. DIOVAN HCT [Suspect]
     Indication: HYPERTENSION
     Dosage: 1 DF, QD
     Route: 048
     Dates: start: 20080101, end: 20101201

REACTIONS (6)
  - CARDIAC ARREST [None]
  - PANCREATIC CARCINOMA [None]
  - LIVER DISORDER [None]
  - RENAL IMPAIRMENT [None]
  - TYPE 2 DIABETES MELLITUS [None]
  - INFLUENZA [None]
